FAERS Safety Report 13197354 (Version 1)
Quarter: 2017Q1

REPORT INFORMATION
  Report Type: Spontaneous
  Country: US (occurrence: US)
  Receive Date: 20170207
  Receipt Date: 20170207
  Transmission Date: 20170428
  Serious: Yes (Other)
  Sender: FDA-Public Use
  Company Number: None

PATIENT
  Age: 30 Year
  Sex: Female

DRUGS (1)
  1. TYSABRI [Suspect]
     Active Substance: NATALIZUMAB
     Indication: MULTIPLE SCLEROSIS
     Dosage: 300MG/15ML Q MONTH IV
     Route: 042
     Dates: start: 20161214

REACTIONS (3)
  - Infection [None]
  - Conjunctivitis [None]
  - Acne [None]

NARRATIVE: CASE EVENT DATE: 20170111
